FAERS Safety Report 5527721-1 (Version None)
Quarter: 2007Q4

REPORT INFORMATION
  Report Type: 
  Country: None (occurrence: None)
  Receive Date: 20071123
  Receipt Date: 20071112
  Transmission Date: 20080405
  Serious: Yes (Death, Hospitalization)
  Sender: FDA-Public Use
  Company Number: 230204K07BRA

PATIENT
  Age: 44 Year
  Sex: Female

DRUGS (1)
  1. REBIF [Suspect]
     Dosage: 44 MCG, 3 IN 1 WEEKS
     Dates: start: 20030401, end: 20070525

REACTIONS (9)
  - DYSPNOEA [None]
  - FALL [None]
  - GENERALISED OEDEMA [None]
  - HEAD INJURY [None]
  - KIDNEY INFECTION [None]
  - MULTIPLE SCLEROSIS RELAPSE [None]
  - PYELONEPHRITIS [None]
  - RENAL FAILURE [None]
  - SEPSIS [None]
